FAERS Safety Report 23022097 (Version 3)
Quarter: 2023Q4

REPORT INFORMATION
  Report Type: Spontaneous
  Country: US (occurrence: US)
  Receive Date: 20231003
  Receipt Date: 20231030
  Transmission Date: 20240110
  Serious: Yes (Other)
  Sender: FDA-Public Use
  Company Number: US-AVEO ONCOLOGY-2023-AVEO-US000714

PATIENT

DRUGS (18)
  1. FOTIVDA [Suspect]
     Active Substance: TIVOZANIB HYDROCHLORIDE
     Indication: Renal cell carcinoma
     Dosage: 0.89 MG, DAILY TAKE 1 CAPSULE FOR 2 WEEKS ON AND 2 WEEKS OFF (28-DAY CYCLE)
     Route: 048
     Dates: start: 20230912, end: 20230926
  2. ACETAMINOPHEN [Concomitant]
     Active Substance: ACETAMINOPHEN
  3. ALLOPURINOL [Concomitant]
     Active Substance: ALLOPURINOL
  4. CALMOSEPTINE [Concomitant]
     Active Substance: MENTHOL\ZINC OXIDE
  5. ELIQUIS [Concomitant]
     Active Substance: APIXABAN
  6. FERROUS SULFATE [Concomitant]
     Active Substance: FERROUS SULFATE
  7. LACTOBACILLUS ACID [Concomitant]
  8. LOPERAMIDE [Concomitant]
     Active Substance: LOPERAMIDE
  9. LORAZEPAM [Concomitant]
     Active Substance: LORAZEPAM
  10. METAMUCIL [Concomitant]
     Active Substance: PLANTAGO SEED
  11. METOPROLOL [Concomitant]
     Active Substance: METOPROLOL
  12. MILK OF MAGNESIA [Concomitant]
     Active Substance: MAGNESIUM HYDROXIDE
  13. OMEPRAZOLE [Concomitant]
     Active Substance: OMEPRAZOLE
  14. ONDANSETRON [Concomitant]
     Active Substance: ONDANSETRON
  15. PREDNISONE [Concomitant]
     Active Substance: PREDNISONE
  16. VITAMIN D3 [Concomitant]
     Active Substance: CHOLECALCIFEROL
  17. LOSARTAN [Concomitant]
     Active Substance: LOSARTAN
  18. CANNABIS SATIVA SUBSP. INDICA TOP [Concomitant]
     Active Substance: CANNABIS SATIVA SUBSP. INDICA TOP

REACTIONS (9)
  - Hypertension [Recovering/Resolving]
  - Dyspnoea [Recovered/Resolved]
  - Confusional state [Recovered/Resolved]
  - Dizziness [Recovered/Resolved]
  - Pulmonary oedema [Unknown]
  - Nocturnal dyspnoea [Recovering/Resolving]
  - Frequent bowel movements [Unknown]
  - Sleep disorder [Recovered/Resolved]
  - Off label use [Not Recovered/Not Resolved]

NARRATIVE: CASE EVENT DATE: 20230912
